FAERS Safety Report 8023288-7 (Version None)
Quarter: 2012Q1

REPORT INFORMATION
  Report Type: 
  Country: None (occurrence: None)
  Receive Date: 20120104
  Receipt Date: 20120103
  Transmission Date: 20120608
  Serious: Yes (Death)
  Sender: FDA-Public Use
  Company Number: US-PFIZER INC-2011308885

PATIENT
  Age: 40 Year
  Sex: Female

DRUGS (6)
  1. ACETAMINOPHEN [Suspect]
  2. IBUPROFEN [Suspect]
  3. HYDROMORPHONE HCL [Suspect]
  4. CARISOPRODOL [Suspect]
  5. ACETAMINOPHEN AND HYDROCODONE BITARTRATE [Suspect]
  6. HYDROCODONE [Suspect]

REACTIONS (2)
  - TOXICITY TO VARIOUS AGENTS [None]
  - COMPLETED SUICIDE [None]
